FAERS Safety Report 8607681 (Version 2)
Quarter: 2012Q4

REPORT INFORMATION
  Report Type: 
  Country: US (occurrence: US)
  Receive Date: 20120611
  Receipt Date: 20121017
  Transmission Date: 20130627
  Serious: Yes (Other)
  Sender: FDA-Public Use
  Company Number: US-BAYER-2012-055832

PATIENT
  Age: 25 Year
  Sex: Female
  Weight: 112.47 kg

DRUGS (15)
  1. YAZ [Suspect]
     Indication: MENOPAUSE
     Dosage: UNK
     Dates: start: 20090706
  2. YAZ [Suspect]
     Indication: PREMENSTRUAL SYNDROME
  3. YASMIN [Suspect]
     Indication: MENOPAUSE
     Dosage: UNK
     Dates: start: 20040417, end: 200604
  4. YASMIN [Suspect]
     Indication: PREMENSTRUAL SYNDROME
     Dosage: UNK
     Dates: start: 20061102, end: 200612
  5. YASMIN [Suspect]
     Indication: MENOPAUSE
     Dosage: UNK
     Dates: start: 20070220, end: 200703
  6. YASMIN [Suspect]
     Indication: MENOPAUSE
     Dosage: UNK
     Dates: start: 20070414, end: 200710
  7. YASMIN [Suspect]
     Indication: MENOPAUSE
     Dosage: UNK
     Dates: start: 20080519, end: 200806
  8. OCELLA [Suspect]
     Indication: MENOPAUSE
     Dosage: UNK
     Dates: start: 20080918, end: 200810
  9. OCELLA [Suspect]
     Indication: PREMENSTRUAL SYNDROME
     Dosage: UNK
     Dates: start: 20090120, end: 200904
  10. OCELLA [Suspect]
     Indication: MENOPAUSE
     Dosage: UNK
     Dates: start: 20090724, end: 201008
  11. LORATADINE [Concomitant]
  12. PHENTERMINE [Concomitant]
  13. RANITIDINE [Concomitant]
  14. B12 [Concomitant]
  15. STRESSTABS [Concomitant]

REACTIONS (6)
  - Gallbladder injury [None]
  - Injury [None]
  - Abdominal pain upper [None]
  - Abdominal distension [None]
  - Cholecystitis chronic [None]
  - Pain [None]
